FAERS Safety Report 22208857 (Version 1)
Quarter: 2023Q2

REPORT INFORMATION
  Report Type: Report from Study
  Country: US (occurrence: US)
  Receive Date: 20230413
  Receipt Date: 20230413
  Transmission Date: 20230722
  Serious: Yes (Other)
  Sender: FDA-Public Use
  Company Number: US-BAYER-2023A044664

PATIENT
  Age: 85 Year
  Sex: Male

DRUGS (7)
  1. NUBEQA [Suspect]
     Active Substance: DAROLUTAMIDE
     Dosage: 300 MG, BID
     Route: 048
     Dates: start: 20230325, end: 2023
  2. AMIODARONE [Concomitant]
     Active Substance: AMIODARONE
  3. ASPIRIN [Concomitant]
     Active Substance: ASPIRIN
  4. ELIGARD [Concomitant]
     Active Substance: LEUPROLIDE ACETATE
  5. ELIQUIS [Concomitant]
     Active Substance: APIXABAN
  6. FARXIGA [Concomitant]
     Active Substance: DAPAGLIFLOZIN PROPANEDIOL
  7. VITAMIN D NOS [Concomitant]
     Active Substance: VITAMIN D NOS

REACTIONS (3)
  - Extrasystoles [Unknown]
  - Fatigue [Unknown]
  - Off label use [None]
